FAERS Safety Report 10536552 (Version 1)
Quarter: 2014Q4

REPORT INFORMATION
  Report Type: Spontaneous
  Country: US (occurrence: US)
  Receive Date: 20141022
  Receipt Date: 20141022
  Transmission Date: 20150529
  Serious: No
  Sender: FDA-Public Use
  Company Number: US-ASTRAZENECA-2014SE25786

PATIENT
  Age: 72 Year
  Sex: Female
  Weight: 88.5 kg

DRUGS (5)
  1. CRESTOR [Suspect]
     Active Substance: ROSUVASTATIN CALCIUM
     Indication: BLOOD CHOLESTEROL ABNORMAL
     Route: 048
  2. ARTICHOKE. [Concomitant]
     Active Substance: ARTICHOKE
     Indication: LIVER DISORDER
  3. LEVOTHYROXINE [Concomitant]
     Active Substance: LEVOTHYROXINE
     Indication: THYROID DISORDER
     Dosage: 100MCG DAILY
  4. ASPIRIN. [Concomitant]
     Active Substance: ASPIRIN
  5. AUROBINDO [Concomitant]
     Indication: CHEST PAIN
     Dosage: 100MG PRN (2-3 TIMES PER W

REACTIONS (4)
  - Gingival swelling [Unknown]
  - Blood alkaline phosphatase increased [Unknown]
  - Pain [Unknown]
  - White blood cell count increased [Unknown]
